FAERS Safety Report 22235700 (Version 1)
Quarter: 2023Q2

REPORT INFORMATION
  Report Type: Spontaneous
  Country: US (occurrence: None)
  Receive Date: 20230419
  Receipt Date: 20230419
  Transmission Date: 20230722
  Serious: No
  Sender: FDA-Public Use
  Company Number: None

PATIENT
  Age: 63 Year
  Sex: Female

DRUGS (1)
  1. ENBREL [Suspect]
     Active Substance: ETANERCEPT
     Indication: Systemic lupus erythematosus
     Dosage: FREQUENCY : WEEKLY;?
     Route: 058
     Dates: start: 202302

REACTIONS (1)
  - Abscess bacterial [None]
